FAERS Safety Report 4512471-0 (Version None)
Quarter: 2004Q4

REPORT INFORMATION
  Report Type: 
  Country: None (occurrence: None)
  Receive Date: 20041008
  Receipt Date: 20040830
  Transmission Date: 20050328
  Serious: Yes (Hospitalization)
  Sender: FDA-Public Use
  Company Number: 379186

PATIENT
  Age: 42 Year
  Sex: Male

DRUGS (1)
  1. FUZEON [Suspect]
     Indication: HIV INFECTION
     Dates: start: 20030415

REACTIONS (3)
  - CD4 LYMPHOCYTES DECREASED [None]
  - PNEUMOCYSTIS CARINII PNEUMONIA [None]
  - VIRAL LOAD INCREASED [None]
